FAERS Safety Report 6266539-1 (Version None)
Quarter: 2009Q3

REPORT INFORMATION
  Report Type: 
  Country: None (occurrence: None)
  Receive Date: 20090710
  Receipt Date: 20090626
  Transmission Date: 20100115
  Serious: Yes (Hospitalization)
  Sender: FDA-Public Use
  Company Number: 8048350

PATIENT
  Age: 30 Year
  Sex: Female

DRUGS (1)
  1. CIMZIA [Suspect]
     Indication: CROHN'S DISEASE
     Dosage: 400 MG SC
     Route: 058
     Dates: start: 20090310

REACTIONS (4)
  - ABDOMINAL ADHESIONS [None]
  - ABSCESS INTESTINAL [None]
  - CONDITION AGGRAVATED [None]
  - CROHN'S DISEASE [None]
